FAERS Safety Report 5179272-4 (Version None)
Quarter: 2006Q4

REPORT INFORMATION
  Report Type: 
  Country: None (occurrence: None)
  Receive Date: 20061219
  Receipt Date: 20060915
  Transmission Date: 20070319
  Serious: Yes (Other)
  Sender: FDA-Public Use
  Company Number: JP-MERCK-0609USA04284

PATIENT
  Age: 27 Year
  Sex: Male

DRUGS (4)
  1. PROPECIA [Suspect]
     Indication: MALE PATTERN BALDNESS
     Route: 048
     Dates: start: 20060912, end: 20060913
  2. PROPECIA [Suspect]
     Route: 048
     Dates: start: 20060101
  3. LIVALO [Concomitant]
     Indication: HYPERLIPIDAEMIA
     Route: 048
     Dates: start: 20060101
  4. LIVALO [Concomitant]
     Route: 048
     Dates: start: 20060911, end: 20060912

REACTIONS (4)
  - CONVULSION [None]
  - HEPATIC FUNCTION ABNORMAL [None]
  - LOSS OF CONSCIOUSNESS [None]
  - SYNCOPE [None]
